FAERS Safety Report 9259567 (Version 3)
Quarter: 2014Q1

REPORT INFORMATION
  Report Type: Spontaneous
  Country: US (occurrence: US)
  Receive Date: 20130429
  Receipt Date: 20140225
  Transmission Date: 20141002
  Serious: Yes (Other)
  Sender: FDA-Public Use
  Company Number: US-ASTRAZENECA-2013SE27498

PATIENT
  Age: 23672 Day
  Sex: Female

DRUGS (18)
  1. NEXIUM [Suspect]
     Indication: GASTROOESOPHAGEAL REFLUX DISEASE
     Dosage: ONCE A DAY
     Route: 048
     Dates: start: 2002
  2. NEXIUM [Suspect]
     Indication: GASTROOESOPHAGEAL REFLUX DISEASE
     Route: 048
     Dates: start: 20050418
  3. NEXIUM [Suspect]
     Indication: GASTROOESOPHAGEAL REFLUX DISEASE
     Route: 048
     Dates: start: 20091215
  4. NEXIUM [Suspect]
     Indication: GASTROOESOPHAGEAL REFLUX DISEASE
     Dosage: 20 AND 40 MG DAILY
     Route: 048
     Dates: start: 2005, end: 2011
  5. PRILOSEC [Suspect]
     Route: 048
     Dates: start: 2004
  6. CLARITIN [Concomitant]
  7. CLONAZEPAM [Concomitant]
  8. DETROL LA [Concomitant]
  9. FLOVENT [Concomitant]
     Dosage: 220 MCG 2 PUFFS TWICE DAILY
  10. FUROSEMIDE [Concomitant]
  11. GLYBURIDE [Concomitant]
  12. LEVOXYL [Concomitant]
  13. LIPITOR [Concomitant]
  14. NASONEX [Concomitant]
  15. SINGULAIR [Concomitant]
  16. TYLENOL ARTHRITIS [Concomitant]
  17. WELLBUTRIN XL [Concomitant]
  18. XANAX [Concomitant]

REACTIONS (9)
  - Foot fracture [Unknown]
  - Osteoporosis [Unknown]
  - Bone disorder [Unknown]
  - Hypothyroidism [Unknown]
  - Osteoarthritis [Unknown]
  - Fall [Unknown]
  - Diarrhoea [Unknown]
  - Local swelling [Unknown]
  - Rib fracture [Unknown]
